FAERS Safety Report 17858579 (Version 2)
Quarter: 2020Q2

REPORT INFORMATION
  Report Type: Report from Study
  Country: None (occurrence: US)
  Receive Date: 20200604
  Receipt Date: 20200605
  Transmission Date: 20200714
  Serious: No
  Sender: FDA-Public Use
  Company Number: US-US WORLDMEDS, LLC-USW201911-002094

PATIENT
  Age: 69 Year
  Sex: Female
  Weight: 79.37 kg

DRUGS (10)
  1. APOKYN [Suspect]
     Active Substance: APOMORPHINE HYDROCHLORIDE
     Indication: PARKINSON^S DISEASE
     Dosage: 3 ML CARTRIDGE 1 EA CART
     Route: 058
     Dates: start: 201909
  2. ATORVASTATIN CALCIUM. [Concomitant]
     Active Substance: ATORVASTATIN CALCIUM
  3. CARBIDOPA/LEVADOPA [Concomitant]
     Active Substance: CARBIDOPA\LEVODOPA
     Indication: PARKINSON^S DISEASE
  4. VENTOLIN HFA [Concomitant]
     Active Substance: ALBUTEROL SULFATE
  5. METOPROLOL. [Concomitant]
     Active Substance: METOPROLOL
     Indication: HYPERTENSION
  6. CARBIDOPA-LEVODOPA-ENTACAPONE [Concomitant]
     Active Substance: CARBIDOPA\ENTACAPONE\LEVODOPA
  7. APOKYN [Suspect]
     Active Substance: APOMORPHINE HYDROCHLORIDE
     Route: 058
     Dates: start: 20191001
  8. ROPINIROLE HYDROCHLORIDE. [Concomitant]
     Active Substance: ROPINIROLE HYDROCHLORIDE
  9. LEVOTHYROXINE SODIUM. [Concomitant]
     Active Substance: LEVOTHYROXINE SODIUM
  10. CITALOPRAM HYDROBROMIDE. [Concomitant]
     Active Substance: CITALOPRAM HYDROBROMIDE

REACTIONS (8)
  - Contusion [Unknown]
  - Injection site pruritus [Unknown]
  - Injection site haemorrhage [Unknown]
  - Injection site erythema [Unknown]
  - Bronchitis [Not Recovered/Not Resolved]
  - Injection site bruising [Unknown]
  - Nausea [Recovered/Resolved]
  - Injection site rash [Recovering/Resolving]

NARRATIVE: CASE EVENT DATE: 201910
